FAERS Safety Report 10165476 (Version 1)
Quarter: 2014Q2

REPORT INFORMATION
  Report Type: Spontaneous
  Country: US (occurrence: US)
  Receive Date: 20140510
  Receipt Date: 20140510
  Transmission Date: 20141212
  Serious: No
  Sender: FDA-Public Use
  Company Number: US-BRISTOL-MYERS SQUIBB COMPANY-20500435

PATIENT
  Age: 55 Year
  Sex: Male
  Weight: 89.79 kg

DRUGS (2)
  1. BYDUREON [Suspect]
     Indication: TYPE 2 DIABETES MELLITUS
     Route: 058
     Dates: start: 2014
  2. LIRAGLUTIDE [Suspect]

REACTIONS (5)
  - Injection site swelling [Recovering/Resolving]
  - Injection site bruising [Unknown]
  - Injection site rash [Unknown]
  - Injection site pruritus [Recovered/Resolved]
  - Blood glucose increased [Unknown]
